FAERS Safety Report 10083271 (Version 1)
Quarter: 2014Q2

REPORT INFORMATION
  Report Type: Spontaneous
  Country: US (occurrence: None)
  Receive Date: 20140415
  Receipt Date: 20140415
  Transmission Date: 20141212
  Serious: No
  Sender: FDA-Public Use
  Company Number: None

PATIENT
  Age: 52 Year
  Sex: Female
  Weight: 63.5 kg

DRUGS (1)
  1. NAPROXEN [Suspect]
     Indication: PAIN IN EXTREMITY
     Dosage: 1TABLET, TWICE DAILY, TAKEN BY MOUTH
     Route: 048
     Dates: start: 20140406, end: 20140407

REACTIONS (4)
  - Abdominal pain upper [None]
  - Vomiting [None]
  - Impaired work ability [None]
  - Feeling abnormal [None]
